FAERS Safety Report 23249123 (Version 3)
Quarter: 2024Q1

REPORT INFORMATION
  Report Type: Other
  Country: US (occurrence: US)
  Receive Date: 20231201
  Receipt Date: 20240125
  Transmission Date: 20240410
  Serious: Yes (Hospitalization)
  Sender: FDA-Public Use
  Company Number: US-INTERCEPT-PM2023002037

PATIENT
  Sex: Female

DRUGS (1)
  1. OCALIVA [Suspect]
     Active Substance: OBETICHOLIC ACID
     Indication: Primary biliary cholangitis
     Dosage: 5 MILLIGRAM, QD
     Route: 048
     Dates: start: 20230607, end: 202309

REACTIONS (6)
  - Loss of consciousness [Recovered/Resolved]
  - Renal impairment [Unknown]
  - Liver function test abnormal [Unknown]
  - Transfusion [Recovered/Resolved]
  - Paracentesis [Recovered/Resolved]
  - Aspiration pleural cavity [Not Recovered/Not Resolved]

NARRATIVE: CASE EVENT DATE: 20230101
